FAERS Safety Report 9492435 (Version 2)
Quarter: 2013Q3

REPORT INFORMATION
  Report Type: Spontaneous
  Country: US (occurrence: US)
  Receive Date: 20130830
  Receipt Date: 20130919
  Transmission Date: 20140515
  Serious: Yes (Other)
  Sender: FDA-Public Use
  Company Number: CHPA2013US013486

PATIENT
  Age: 72 Year
  Sex: Male
  Weight: 94.33 kg

DRUGS (10)
  1. GAS-X EXTRA STRENGTH SOFTGELS [Suspect]
     Indication: FLATULENCE
     Dosage: 2 DF, PRN
     Route: 048
     Dates: start: 2007
  2. GAS-X EXTRA STRENGTH SOFTGELS [Suspect]
     Indication: ABDOMINAL DISTENSION
     Dosage: 3 PILLS, TWICE WITHIN A COUPLE HOURS
     Route: 048
     Dates: start: 20130826, end: 20130826
  3. BAYER ASPIRIN [Concomitant]
     Dosage: 81 MG, QD
     Route: 048
  4. DIOVAN [Concomitant]
     Dosage: 1 DF, BID
     Route: 048
  5. ACIDOPHILUS [Concomitant]
     Dosage: UNK, UNK
  6. CLONAZEPAM [Concomitant]
     Dosage: 1 MG, UNK
  7. DULOXETINE [Concomitant]
     Dosage: 1 DF, QD
     Route: 048
  8. OMEPRAZOLE [Concomitant]
     Dosage: 20 MG, QD
  9. TIMOLOL [Concomitant]
  10. TRAVATAN Z [Concomitant]

REACTIONS (10)
  - Gastric haemorrhage [Unknown]
  - Gastritis [Unknown]
  - Melaena [Unknown]
  - Rotator cuff syndrome [Unknown]
  - Musculoskeletal pain [Not Recovered/Not Resolved]
  - Fall [Unknown]
  - Abdominal distension [Unknown]
  - Faeces discoloured [Not Recovered/Not Resolved]
  - Faecal incontinence [Recovered/Resolved]
  - Overdose [Unknown]
